FAERS Safety Report 6428345-4 (Version None)
Quarter: 2009Q4

REPORT INFORMATION
  Report Type: 
  Country: None (occurrence: None)
  Receive Date: 20091105
  Receipt Date: 20091021
  Transmission Date: 20100525
  Serious: Yes (Other)
  Sender: FDA-Public Use
  Company Number: US-BRACCO-BDI-009558

PATIENT
  Age: 71 Year
  Sex: Male

DRUGS (6)
  1. OMNISCAN [Suspect]
     Indication: NUCLEAR MAGNETIC RESONANCE IMAGING
     Dosage: ADMINISTERED 0.1 MILLIMOLES/KILOGRAM
     Route: 042
     Dates: start: 20020620, end: 20020620
  2. OMNISCAN [Suspect]
     Dosage: ADMINISTERED 0.1 MILLIMOLES/KILOGRAM
     Route: 042
     Dates: start: 20020620, end: 20020620
  3. PROHANCE [Suspect]
     Indication: ANGIOGRAM
     Dosage: ADMINISTERED 0.32 MILLIMOLES/KILOGRAM
     Route: 013
     Dates: start: 20020624, end: 20020624
  4. OMNISCAN [Suspect]
     Indication: ANGIOGRAM
     Dosage: 0.2 MMOL/KG
     Route: 013
     Dates: start: 20060207, end: 20060207
  5. OMNISCAN [Suspect]
     Dosage: 0.1 MMOL/KG
     Route: 042
     Dates: start: 20060203, end: 20060203
  6. OMNISCAN [Suspect]
     Indication: RENAL SCAN
     Dosage: 0.2 MMOL/KG
     Route: 042
     Dates: start: 20030225, end: 20030225

REACTIONS (1)
  - NEPHROGENIC SYSTEMIC FIBROSIS [None]
